FAERS Safety Report 6324939-5 (Version None)
Quarter: 2009Q3

REPORT INFORMATION
  Report Type: 
  Country: None (occurrence: None)
  Receive Date: 20090824
  Receipt Date: 20090617
  Transmission Date: 20100115
  Serious: No
  Sender: FDA-Public Use
  Company Number: US-ABBOTT-09P-163-0580608-00

PATIENT
  Sex: Female
  Weight: 82.174 kg

DRUGS (1)
  1. NIASPAN [Suspect]
     Indication: BLOOD TRIGLYCERIDES INCREASED
     Route: 048
     Dates: start: 20081215

REACTIONS (4)
  - ASTHENIA [None]
  - DIZZINESS [None]
  - FLUSHING [None]
  - PALPITATIONS [None]
